FAERS Safety Report 25442465 (Version 2)
Quarter: 2025Q3

REPORT INFORMATION
  Report Type: Report from Study
  Country: US (occurrence: US)
  Receive Date: 20250617
  Receipt Date: 20250704
  Transmission Date: 20251021
  Serious: Yes (Hospitalization, Other)
  Sender: ABBVIE
  Company Number: US-ABBVIE-6326480

PATIENT
  Age: 68 Year
  Sex: Male

DRUGS (1)
  1. SKYRIZI [Suspect]
     Active Substance: RISANKIZUMAB-RZAA
     Indication: Crohn^s disease
     Route: 042
     Dates: start: 20250310

REACTIONS (4)
  - Cardiac operation [Recovering/Resolving]
  - Arterial occlusive disease [Recovering/Resolving]
  - Chest pain [Unknown]
  - Coronary artery bypass [Unknown]

NARRATIVE: CASE EVENT DATE: 20250101
